FAERS Safety Report 8463201-1 (Version None)
Quarter: 2012Q2

REPORT INFORMATION
  Report Type: 
  Country: None (occurrence: None)
  Receive Date: 20120625
  Receipt Date: 20120621
  Transmission Date: 20120825
  Serious: Yes (Other)
  Sender: FDA-Public Use
  Company Number: US-PFIZER INC-2012150130

PATIENT
  Sex: Female
  Weight: 195 kg

DRUGS (3)
  1. SERTRALINE HYDROCHLORIDE [Suspect]
     Indication: DEPRESSION
     Dosage: 200 MG, DAILY
     Dates: end: 20120101
  2. SERTRALINE HYDROCHLORIDE [Suspect]
     Indication: FEELING OF DESPAIR
  3. LANTUS [Concomitant]
     Indication: DIABETES MELLITUS
     Dosage: 300 IU, DAILY

REACTIONS (2)
  - SUICIDAL IDEATION [None]
  - FEAR [None]
